FAERS Safety Report 7759029-8 (Version None)
Quarter: 2011Q3

REPORT INFORMATION
  Report Type: 
  Country: None (occurrence: None)
  Receive Date: 20110919
  Receipt Date: 20110911
  Transmission Date: 20111222
  Serious: Yes (Hospitalization, Other)
  Sender: FDA-Public Use
  Company Number: US-US-EMD SERONO, INC.-7082136

PATIENT
  Sex: Female

DRUGS (4)
  1. NEURONTIN [Concomitant]
  2. DEPAKOTE [Concomitant]
  3. TEGRETOL [Concomitant]
  4. REBIF [Suspect]
     Indication: MULTIPLE SCLEROSIS
     Route: 058
     Dates: start: 20030417

REACTIONS (2)
  - MULTIPLE SCLEROSIS [None]
  - GRAND MAL CONVULSION [None]
